FAERS Safety Report 11124134 (Version 2)
Quarter: 2015Q2

REPORT INFORMATION
  Report Type: Spontaneous
  Country: GB (occurrence: GB)
  Receive Date: 20150520
  Receipt Date: 20150520
  Transmission Date: 20150821
  Serious: Yes (Other)
  Sender: FDA-Public Use
  Company Number: GB-AUROBINDO-AUR-APL-2014-00371

PATIENT
  Age: 69 Year
  Sex: Female

DRUGS (5)
  1. SIMVASTATIN FILM-COATED TABLETS 20MG [Suspect]
     Active Substance: SIMVASTATIN
     Indication: HYPERCHOLESTEROLAEMIA
     Dosage: 20 MG, EVERY MORNING
     Route: 065
     Dates: start: 20120601, end: 201209
  2. SIMVASTATIN FILM-COATED TABLETS 20MG [Suspect]
     Active Substance: SIMVASTATIN
     Dosage: 10 MG, EVERY MORNING
     Route: 065
     Dates: start: 201209, end: 201311
  3. COD LIVER OIL [Concomitant]
     Active Substance: COD LIVER OIL
     Indication: PRODUCT USED FOR UNKNOWN INDICATION
     Dosage: OCCASIONALLY
     Route: 065
  4. GARLIC                             /01570501/ [Concomitant]
     Indication: PRODUCT USED FOR UNKNOWN INDICATION
     Dosage: OCCASIONALLY
     Route: 065
  5. MULTIVITAMIN                       /00097801/ [Concomitant]
     Active Substance: VITAMINS
     Indication: PRODUCT USED FOR UNKNOWN INDICATION
     Dosage: OCCASIONALLY
     Route: 065

REACTIONS (8)
  - Aortic calcification [None]
  - Alopecia [Not Recovered/Not Resolved]
  - Anxiety [Not Recovered/Not Resolved]
  - Muscle atrophy [Not Recovered/Not Resolved]
  - Weight decreased [Not Recovered/Not Resolved]
  - Breast atrophy [Not Recovered/Not Resolved]
  - Vascular calcification [None]
  - Arterial stenosis [None]
